FAERS Safety Report 9184881 (Version 1)
Quarter: 2013Q1

REPORT INFORMATION
  Report Type: Spontaneous
  Country: US (occurrence: US)
  Receive Date: 20130325
  Receipt Date: 20130325
  Transmission Date: 20140127
  Serious: No
  Sender: FDA-Public Use
  Company Number: US-BRISTOL-MYERS SQUIBB COMPANY-16515256

PATIENT
  Age: 70 Year
  Sex: Male

DRUGS (1)
  1. ERBITUX [Suspect]
     Indication: COLON CANCER
     Dosage: TREATMENT DATES ARE WEDNESDAY 11APR2012, WEDNESDAY 04APR2012, AND WEDNESDAY 28MAR2012

REACTIONS (2)
  - Acne [Unknown]
  - Dry skin [Unknown]
